FAERS Safety Report 15533870 (Version 1)
Quarter: 2018Q4

REPORT INFORMATION
  Report Type: Spontaneous
  Country: NZ (occurrence: NZ)
  Receive Date: 20181019
  Receipt Date: 20181019
  Transmission Date: 20190205
  Serious: Yes (Other)
  Sender: FDA-Public Use
  Company Number: NZ-009507513-1810NZL008416

PATIENT
  Sex: Male

DRUGS (3)
  1. SINGULAIR [Suspect]
     Active Substance: MONTELUKAST SODIUM
     Indication: ASTHMA
     Dosage: 4 MG, QD
     Route: 048
     Dates: start: 20150910, end: 20160927
  2. ACETAMINOPHEN. [Concomitant]
     Active Substance: ACETAMINOPHEN
     Dosage: UNK, PRN
     Route: 048
  3. HEALTHERIES IRON AND VITAMIN C [Concomitant]
     Dosage: UNK
     Route: 048

REACTIONS (4)
  - Mood swings [Not Recovered/Not Resolved]
  - Sleep disorder [Not Recovered/Not Resolved]
  - Anxiety [Not Recovered/Not Resolved]
  - Aggression [Not Recovered/Not Resolved]

NARRATIVE: CASE EVENT DATE: 2015
